FAERS Safety Report 16564611 (Version 1)
Quarter: 2019Q3

REPORT INFORMATION
  Report Type: Spontaneous
  Country: US (occurrence: US)
  Receive Date: 20190712
  Receipt Date: 20190712
  Transmission Date: 20191004
  Serious: No
  Sender: FDA-Public Use
  Company Number: US-DRREDDYS-USA/USA/19/0111762

PATIENT
  Sex: Female

DRUGS (1)
  1. NUPERCAINAL [Suspect]
     Active Substance: DIBUCAINE
     Indication: HAEMORRHOIDS
     Dates: start: 20190707

REACTIONS (2)
  - Application site rash [Not Recovered/Not Resolved]
  - Application site pain [Not Recovered/Not Resolved]

NARRATIVE: CASE EVENT DATE: 20190707
